FAERS Safety Report 8360428-4 (Version None)
Quarter: 2012Q2

REPORT INFORMATION
  Report Type: 
  Country: None (occurrence: None)
  Receive Date: 20120515
  Receipt Date: 20120511
  Transmission Date: 20120825
  Serious: Yes (Other)
  Sender: FDA-Public Use
  Company Number: US-PFIZER INC-2012089937

PATIENT
  Sex: Female
  Weight: 71.202 kg

DRUGS (6)
  1. LISINOPRIL [Concomitant]
     Dosage: UNK
  2. BUFFERIN [Concomitant]
     Dosage: UNK
  3. ATENOLOL [Concomitant]
     Dosage: UNK
  4. METFORMIN [Concomitant]
     Indication: TYPE 2 DIABETES MELLITUS
     Dosage: 1500 MG (1000MG IN THE MORNING AND 500MG IN THE EVENING), UNK
  5. PREMARIN [Suspect]
     Indication: PREMATURE MENOPAUSE
     Dosage: 1 DF, 1X/DAY
     Route: 048
     Dates: start: 19950101, end: 20120101
  6. LIPITOR [Concomitant]
     Dosage: 10 MG, UNK

REACTIONS (13)
  - WEIGHT DECREASED [None]
  - MUSCULOSKELETAL DISCOMFORT [None]
  - DERMAL CYST [None]
  - MUSCULAR WEAKNESS [None]
  - MOOD ALTERED [None]
  - BODY HEIGHT DECREASED [None]
  - ENDOCRINE DISORDER [None]
  - ABNORMAL FAECES [None]
  - DISTURBANCE IN ATTENTION [None]
  - FEELING ABNORMAL [None]
  - ENDOMETRIOSIS [None]
  - STAPHYLOCOCCAL INFECTION [None]
  - CYST [None]
